FAERS Safety Report 6599426-X (Version None)
Quarter: 2010Q1

REPORT INFORMATION
  Report Type: 
  Country: None (occurrence: None)
  Receive Date: 20100224
  Receipt Date: 20100219
  Transmission Date: 20100710
  Serious: Yes (Death, Hospitalization)
  Sender: FDA-Public Use
  Company Number: CA-CELGENEUS-028-21880-10020346

PATIENT
  Sex: Male

DRUGS (1)
  1. REVLIMID [Suspect]
     Route: 048
     Dates: start: 20100101, end: 20100130

REACTIONS (1)
  - NEOPLASM PROGRESSION [None]
